FAERS Safety Report 9894611 (Version 1)
Quarter: 2014Q1

REPORT INFORMATION
  Report Type: Spontaneous
  Country: FR (occurrence: FR)
  Receive Date: 20140213
  Receipt Date: 20140213
  Transmission Date: 20141002
  Serious: Yes (Other)
  Sender: FDA-Public Use
  Company Number: PHHY2013FR155494

PATIENT
  Age: 60 Year
  Sex: Male

DRUGS (1)
  1. OSLIF BREEZHALER [Suspect]
     Dosage: 1 DF, QD, DAILY
     Route: 055

REACTIONS (1)
  - Transaminases increased [Unknown]
